FAERS Safety Report 5336294-8 (Version None)
Quarter: 2007Q2

REPORT INFORMATION
  Report Type: 
  Country: None (occurrence: None)
  Receive Date: 20070522
  Receipt Date: 20070510
  Transmission Date: 20071010
  Serious: Yes (Other)
  Sender: FDA-Public Use
  Company Number: 2007SP005003

PATIENT
  Age: 76 Year
  Sex: Female

DRUGS (2)
  1. CLARITIN [Suspect]
     Indication: HYPERSENSITIVITY
     Dosage: 1 DF;QD; PO
     Route: 048
     Dates: start: 20060101, end: 20060101
  2. AMPICILLIN [Concomitant]

REACTIONS (3)
  - LIP SWELLING [None]
  - OEDEMA MOUTH [None]
  - PHARMACEUTICAL PRODUCT COMPLAINT [None]
